FAERS Safety Report 5330546-3 (Version None)
Quarter: 2007Q2

REPORT INFORMATION
  Report Type: 
  Country: None (occurrence: None)
  Receive Date: 20070521
  Receipt Date: 20070510
  Transmission Date: 20071010
  Serious: Yes (Hospitalization, Other)
  Sender: FDA-Public Use
  Company Number: DE-PFIZER INC-2007038881

PATIENT
  Sex: Male

DRUGS (5)
  1. INSPRA [Interacting]
     Indication: PRIMARY HYPERALDOSTERONISM
     Route: 048
  2. AMLODIPINE [Interacting]
  3. SIMVASTATIN [Suspect]
  4. DOXAZOSIN MESYLATE [Concomitant]
  5. BISOPROLOL FUMARATE [Concomitant]

REACTIONS (4)
  - BLOOD BILIRUBIN INCREASED [None]
  - DRUG INTERACTION [None]
  - HYPERTENSIVE CRISIS [None]
  - TRANSAMINASES INCREASED [None]
